FAERS Safety Report 9848697 (Version 1)
Quarter: 2013Q4

REPORT INFORMATION
  Report Type: Spontaneous
  Country: US (occurrence: None)
  Receive Date: 20131224
  Receipt Date: 20131224
  Transmission Date: 20140711
  Serious: Yes (Hospitalization)
  Sender: FDA-Public Use
  Company Number: PHEH2013US011346

PATIENT
  Age: 23 Year
  Sex: Male

DRUGS (2)
  1. CLOZARIL (CLOZAPINE) UNKNOWN [Suspect]
  2. MIRTAZAPINE [Suspect]
     Indication: DEPRESSION
     Dates: start: 201210

REACTIONS (2)
  - Anxiety [None]
  - Depression [None]
